FAERS Safety Report 13275201 (Version 3)
Quarter: 2017Q4

REPORT INFORMATION
  Report Type: Report from Study
  Country: CA (occurrence: CA)
  Receive Date: 20170227
  Receipt Date: 20171101
  Transmission Date: 20180320
  Serious: Yes (Other)
  Sender: FDA-Public Use
  Company Number: PHHY2017CA027097

PATIENT
  Age: 59 Year
  Sex: Male

DRUGS (3)
  1. COSENTYX [Suspect]
     Active Substance: SECUKINUMAB
     Indication: PSORIASIS
     Dosage: 300 MG, QMO
     Route: 058
     Dates: start: 20170216
  2. CICLOSPORIN [Suspect]
     Active Substance: CYCLOSPORINE
     Indication: PSORIASIS
     Route: 065
     Dates: start: 201601
  3. COSENTYX [Suspect]
     Active Substance: SECUKINUMAB
     Dosage: 300 MG, QMO
     Route: 058
     Dates: start: 20171016

REACTIONS (7)
  - Incorrect dose administered [Unknown]
  - Liposarcoma [Unknown]
  - Injection site laceration [Unknown]
  - Inappropriate schedule of drug administration [Unknown]
  - Hypertension [Unknown]
  - Rotator cuff syndrome [Unknown]
  - Bursitis [Unknown]

NARRATIVE: CASE EVENT DATE: 2016
